FAERS Safety Report 16937980 (Version 2)
Quarter: 2019Q4

REPORT INFORMATION
  Report Type: Report from Study
  Country: MX (occurrence: MX)
  Receive Date: 20191018
  Receipt Date: 20191128
  Transmission Date: 20200122
  Serious: Yes (Other)
  Sender: FDA-Public Use
  Company Number: PHHY2017MX085964

PATIENT
  Age: 81 Year
  Sex: Female
  Weight: 58 kg

DRUGS (15)
  1. VASCOL [Concomitant]
     Indication: BLOOD CHOLESTEROL INCREASED
     Dosage: 0.5 DF, 3 TIMES  AWEEK
     Route: 048
  2. UNIVAL [Concomitant]
     Indication: PRODUCT USED FOR UNKNOWN INDICATION
     Route: 065
  3. CONCOR [Concomitant]
     Active Substance: BISOPROLOL FUMARATE
     Indication: BLOOD PRESSURE INADEQUATELY CONTROLLED
     Dosage: 0.5 DF, AT MIDDAY, DAILY (MONDAY, WEDNESDAY, FRIDAY AND SUNDAY)
     Route: 048
     Dates: start: 20170405
  4. CO-DIOVAN [Suspect]
     Active Substance: HYDROCHLOROTHIAZIDE\VALSARTAN
     Dosage: 2 DF (HYDROCHLOROTHIAZIDE 12.5 MG, VALSARTAN 320 MG), QD
     Route: 048
  5. CO-DIOVAN [Suspect]
     Active Substance: HYDROCHLOROTHIAZIDE\VALSARTAN
     Dosage: 1 DF (HYDROCHLOROTHIAZIDE 12.5 MG, VALSARTAN 320 MG), QD
     Route: 048
  6. ESCITALOPRAM [Suspect]
     Active Substance: ESCITALOPRAM OXALATE
     Indication: DEPRESSION
     Dosage: 10 MG, QD
     Route: 065
     Dates: start: 201707
  7. ELATEC [Concomitant]
     Indication: CARDIOVASCULAR DISORDER
     Dosage: 2 DF, QD (1 IN THE MORNING AND 1 AT NIGHT)
     Route: 048
     Dates: start: 20170508
  8. CO-DIOVAN [Suspect]
     Active Substance: HYDROCHLOROTHIAZIDE\VALSARTAN
     Dosage: 1 DF (HYDROCHLOROTHIAZIDE 12.5 MG, VALSARTAN 320 MG), QD
     Route: 048
     Dates: start: 20170405
  9. ATELEC [Concomitant]
     Active Substance: CILNIDIPINE
     Indication: CARDIOVASCULAR DISORDER
     Dosage: 2 DF (500), QD
     Route: 065
     Dates: start: 201704
  10. CO-DIOVAN [Suspect]
     Active Substance: HYDROCHLOROTHIAZIDE\VALSARTAN
     Indication: HYPERTENSION
     Dosage: UNK
     Route: 048
  11. CO-DIOVAN [Suspect]
     Active Substance: HYDROCHLOROTHIAZIDE\VALSARTAN
     Dosage: 1.5 DF (HYDROCHLOROTHIAZIDE 12.5 MG AND VALSARTAN 320 MG), QD
     Route: 048
     Dates: start: 20170405
  12. CO-DIOVAN [Suspect]
     Active Substance: HYDROCHLOROTHIAZIDE\VALSARTAN
     Dosage: 1 DF (HYDROCHLOROTHIAZIDE 12.5 MG AND VALSARTAN 320 MG), QD
     Route: 048
     Dates: start: 201706
  13. CO-DIOVAN [Suspect]
     Active Substance: HYDROCHLOROTHIAZIDE\VALSARTAN
     Dosage: 2.5 DF (HYDROCHLOROTHIAZIDE 12.5 MG, VALSARTAN 320 MG), QD
     Route: 048
  14. CO-DIOVAN [Suspect]
     Active Substance: HYDROCHLOROTHIAZIDE\VALSARTAN
     Dosage: 1 DF (HYDROCHLOROTHIAZIDE 12.5 MG, VALSARTAN 320 MG), QD
     Route: 048
     Dates: start: 20170417
  15. CLONAZEPAM. [Concomitant]
     Active Substance: CLONAZEPAM
     Indication: INSOMNIA
     Dosage: 5 DF, QD
     Route: 048

REACTIONS (36)
  - Pain in extremity [Not Recovered/Not Resolved]
  - Nodule [Unknown]
  - Limb discomfort [Unknown]
  - Blood pressure inadequately controlled [Unknown]
  - Blood pressure diastolic decreased [Recovering/Resolving]
  - Nasopharyngitis [Not Recovered/Not Resolved]
  - Anxiety [Recovered/Resolved]
  - Blood pressure systolic increased [Recovered/Resolved]
  - Stress [Unknown]
  - Spinal pain [Not Recovered/Not Resolved]
  - Blood pressure fluctuation [Recovering/Resolving]
  - Headache [Not Recovered/Not Resolved]
  - Incorrect dose administered [Unknown]
  - Wrong technique in product usage process [Not Recovered/Not Resolved]
  - Dysphonia [Unknown]
  - Depression [Unknown]
  - Pyrexia [Unknown]
  - Hiatus hernia [Unknown]
  - Vocal cord inflammation [Unknown]
  - Cough [Unknown]
  - Speech disorder [Unknown]
  - Feeling abnormal [Unknown]
  - Throat irritation [Unknown]
  - Dyspnoea [Unknown]
  - Product prescribing error [Not Recovered/Not Resolved]
  - Fall [Unknown]
  - Arterial disorder [Unknown]
  - Feeling hot [Unknown]
  - Blood pressure decreased [Recovered/Resolved]
  - Bronchitis [Recovering/Resolving]
  - Blood pressure increased [Recovered/Resolved]
  - Insomnia [Unknown]
  - Neck pain [Not Recovered/Not Resolved]
  - Blood pressure increased [Recovering/Resolving]
  - Malaise [Unknown]
  - Inappropriate schedule of product administration [Not Recovered/Not Resolved]

NARRATIVE: CASE EVENT DATE: 20170405
